FAERS Safety Report 6241988-6 (Version None)
Quarter: 2009Q2

REPORT INFORMATION
  Report Type: 
  Country: None (occurrence: None)
  Receive Date: 20090622
  Receipt Date: 20090608
  Transmission Date: 20091009
  Serious: Yes (Hospitalization)
  Sender: FDA-Public Use
  Company Number: A-US2007-18614

PATIENT
  Age: 71 Year
  Sex: Female
  Weight: 64.5 kg

DRUGS (19)
  1. TRACLEER [Suspect]
     Indication: PULMONARY ARTERIAL HYPERTENSION
     Dosage: 125 MG, BID, ORAL; 62.5 MG, BID, ORAL
     Route: 048
     Dates: start: 20071101, end: 20090608
  2. TRACLEER [Suspect]
     Indication: PULMONARY ARTERIAL HYPERTENSION
     Dosage: 125 MG, BID, ORAL; 62.5 MG, BID, ORAL
     Route: 048
     Dates: start: 20071001
  3. METFORMIN HCL [Concomitant]
  4. LASIX [Concomitant]
  5. FENTANYL CITRATE [Concomitant]
  6. ASPIRIN [Concomitant]
  7. AMITRIPTYLINE HCL [Concomitant]
  8. GEMFIBROZIL [Concomitant]
  9. GLIPIZIDE [Concomitant]
  10. ACTOS [Concomitant]
  11. CELEBREX [Concomitant]
  12. TAMOXIFEN CITRATE [Concomitant]
  13. NITROSTAT [Concomitant]
  14. COLACE (DUCUSATE SODIUM) [Concomitant]
  15. METOPROLOL TARTRATE [Concomitant]
  16. OXYGEN (OXYGEN) [Concomitant]
  17. ACETAMINOPHEN AND OXYCODONE HCL [Concomitant]
  18. METOLAZONE [Concomitant]
  19. PROTONIX [Concomitant]

REACTIONS (7)
  - ABDOMINAL DISCOMFORT [None]
  - DEPRESSION [None]
  - FLUSHING [None]
  - HOT FLUSH [None]
  - INCREASED UPPER AIRWAY SECRETION [None]
  - OEDEMA PERIPHERAL [None]
  - REVERSIBLE POSTERIOR LEUKOENCEPHALOPATHY SYNDROME [None]
